FAERS Safety Report 13562955 (Version 2)
Quarter: 2019Q1

REPORT INFORMATION
  Report Type: Spontaneous
  Country: US (occurrence: US)
  Receive Date: 20170519
  Receipt Date: 20190227
  Transmission Date: 20190417
  Serious: No
  Sender: FDA-Public Use
  Company Number: US-JNJFOC-20170223377

PATIENT
  Age: 86 Year
  Sex: Female
  Weight: 58.51 kg

DRUGS (18)
  1. SUDAFED NASAL DECONGESTANT MAXIMUM STRENGTH [Suspect]
     Active Substance: PSEUDOEPHEDRINE HYDROCHLORIDE
     Indication: SECRETION DISCHARGE
     Route: 048
     Dates: start: 20170216, end: 20170221
  2. SUDAFED NASAL DECONGESTANT MAXIMUM STRENGTH [Suspect]
     Active Substance: PSEUDOEPHEDRINE HYDROCHLORIDE
     Indication: SINUS CONGESTION
     Route: 048
     Dates: start: 20170216, end: 20170221
  3. CEPHALEXINE [Concomitant]
     Active Substance: CEPHALEXIN
     Indication: SINUS CONGESTION
     Dosage: 5 DAYS
     Route: 065
  4. MUCINEX DM [Concomitant]
     Active Substance: DEXTROMETHORPHAN HYDROBROMIDE\GUAIFENESIN
     Indication: SECRETION DISCHARGE
     Dosage: 3/500 MG, 5 DAYS
     Route: 065
  5. MUCINEX DM [Concomitant]
     Active Substance: DEXTROMETHORPHAN HYDROBROMIDE\GUAIFENESIN
     Indication: INFLUENZA
     Dosage: 3/500 MG, 5 DAYS
     Route: 065
  6. CEPHALEXINE [Concomitant]
     Active Substance: CEPHALEXIN
     Indication: RHINORRHOEA
     Dosage: 5 DAYS
     Route: 065
  7. MUCINEX DM [Concomitant]
     Active Substance: DEXTROMETHORPHAN HYDROBROMIDE\GUAIFENESIN
     Indication: SINUS CONGESTION
     Dosage: 3/500 MG, 5 DAYS
     Route: 065
  8. SUDAFED NASAL DECONGESTANT MAXIMUM STRENGTH [Suspect]
     Active Substance: PSEUDOEPHEDRINE HYDROCHLORIDE
     Indication: DRUG HYPERSENSITIVITY
     Route: 048
     Dates: start: 20170216, end: 20170221
  9. CEPHALEXINE [Concomitant]
     Active Substance: CEPHALEXIN
     Indication: SECRETION DISCHARGE
     Dosage: 5 DAYS
     Route: 065
  10. SUDAFED NASAL DECONGESTANT MAXIMUM STRENGTH [Suspect]
     Active Substance: PSEUDOEPHEDRINE HYDROCHLORIDE
     Indication: RHINORRHOEA
     Route: 048
     Dates: start: 20170216, end: 20170221
  11. CEPHALEXINE [Concomitant]
     Active Substance: CEPHALEXIN
     Indication: DRUG HYPERSENSITIVITY
     Dosage: 5 DAYS
     Route: 065
  12. SUDAFED NASAL DECONGESTANT MAXIMUM STRENGTH [Suspect]
     Active Substance: PSEUDOEPHEDRINE HYDROCHLORIDE
     Indication: INFLUENZA
     Route: 048
     Dates: start: 20170216, end: 20170221
  13. MUCINEX DM [Concomitant]
     Active Substance: DEXTROMETHORPHAN HYDROBROMIDE\GUAIFENESIN
     Indication: DRUG HYPERSENSITIVITY
     Dosage: 3/500 MG, 5 DAYS
     Route: 065
  14. SUDAFED NASAL DECONGESTANT MAXIMUM STRENGTH [Suspect]
     Active Substance: PSEUDOEPHEDRINE HYDROCHLORIDE
     Indication: SINUSITIS
     Route: 048
     Dates: start: 20170216, end: 20170221
  15. CEPHALEXINE [Concomitant]
     Active Substance: CEPHALEXIN
     Indication: SINUSITIS
     Dosage: 5 DAYS
     Route: 065
  16. MUCINEX DM [Concomitant]
     Active Substance: DEXTROMETHORPHAN HYDROBROMIDE\GUAIFENESIN
     Indication: SINUSITIS
     Dosage: 3/500 MG, 5 DAYS
     Route: 065
  17. CEPHALEXINE [Concomitant]
     Active Substance: CEPHALEXIN
     Indication: INFLUENZA
     Dosage: 5 DAYS
     Route: 065
  18. MUCINEX DM [Concomitant]
     Active Substance: DEXTROMETHORPHAN HYDROBROMIDE\GUAIFENESIN
     Indication: RHINORRHOEA
     Dosage: 3/500 MG, 5 DAYS
     Route: 065

REACTIONS (10)
  - Off label use [Recovering/Resolving]
  - Ear discomfort [Recovering/Resolving]
  - Burning sensation [Recovering/Resolving]
  - Throat irritation [Recovering/Resolving]
  - Product use in unapproved indication [Recovering/Resolving]
  - Pruritus [Recovering/Resolving]
  - Product label issue [Unknown]
  - Mucous membrane disorder [Recovering/Resolving]
  - Respiratory tract congestion [Recovering/Resolving]
  - Hypersensitivity [Recovering/Resolving]

NARRATIVE: CASE EVENT DATE: 20170216
